FAERS Safety Report 5429848-1 (Version None)
Quarter: 2007Q3

REPORT INFORMATION
  Report Type: 
  Country: None (occurrence: None)
  Receive Date: 20070829
  Receipt Date: 20070817
  Transmission Date: 20080115
  Serious: Yes (Other)
  Sender: FDA-Public Use
  Company Number: US-PFIZER INC-2007070431

PATIENT
  Sex: Female
  Weight: 95.3 kg

DRUGS (6)
  1. CHANTIX [Suspect]
     Indication: SMOKING CESSATION THERAPY
  2. LEXAPRO [Concomitant]
  3. ALL OTHER THERAPEUTIC PRODUCTS [Concomitant]
  4. VITAMIN CAP [Concomitant]
  5. FISH OIL [Concomitant]
  6. SYNTHROID [Concomitant]

REACTIONS (2)
  - CONDITION AGGRAVATED [None]
  - GASTRITIS [None]
